FAERS Safety Report 7653903-9 (Version None)
Quarter: 2011Q3

REPORT INFORMATION
  Report Type: 
  Country: None (occurrence: None)
  Receive Date: 20110803
  Receipt Date: 20110801
  Transmission Date: 20111222
  Serious: Yes (Hospitalization)
  Sender: FDA-Public Use
  Company Number: CHPA2011US10162

PATIENT
  Age: 48 Year
  Sex: Male

DRUGS (2)
  1. VOLTAREN [Suspect]
     Indication: INTERVERTEBRAL DISC PROTRUSION
     Dosage: 20 G IN ABOUT A WEEK
     Route: 061
     Dates: end: 20110726
  2. DICLOFENAC SODIUM [Suspect]
     Indication: INTERVERTEBRAL DISC PROTRUSION
     Dosage: 2 DF, QD
     Route: 048

REACTIONS (5)
  - JOINT SWELLING [None]
  - DRUG ADMINISTRATION ERROR [None]
  - DRUG ADMINISTERED AT INAPPROPRIATE SITE [None]
  - OEDEMA PERIPHERAL [None]
  - OFF LABEL USE [None]
